FAERS Safety Report 4477733-4 (Version None)
Quarter: 2004Q4

REPORT INFORMATION
  Report Type: 
  Country: None (occurrence: None)
  Receive Date: 20041014
  Receipt Date: 20041001
  Transmission Date: 20050328
  Serious: Yes (Other)
  Sender: FDA-Public Use
  Company Number: 163-20785-04100142

PATIENT

DRUGS (6)
  1. THALIDOMIDE\PLACEBO (CAPSULES) [Suspect]
     Indication: PROSTATE CANCER
     Dosage: SEE IMAGE, ORALLY DAILY
     Route: 048
     Dates: start: 20010430
  2. THALIDOMIDE\PLACEBO (CAPSULES) [Suspect]
     Indication: PROSTATE CANCER
     Dosage: SEE IMAGE, ORALLY DAILY
     Route: 048
     Dates: start: 20020805
  3. THALIDOMIDE\PLACEBO (CAPSULES) [Suspect]
     Indication: PROSTATE CANCER
     Dosage: SEE IMAGE, ORALLY DAILY
     Route: 048
     Dates: start: 20030908
  4. LEUPROLIDE (L) OR GOSERELIN (G) [Suspect]
     Indication: PROSTATE CANCER
     Dosage: SEE IMAGE, SC
     Route: 058
     Dates: start: 20010430
  5. LEUPROLIDE (L) OR GOSERELIN (G) [Suspect]
     Indication: PROSTATE CANCER
     Dosage: SEE IMAGE, SC
     Route: 058
     Dates: start: 20020805
  6. LEUPROLIDE (L) OR GOSERELIN (G) [Suspect]
     Indication: PROSTATE CANCER
     Dosage: SEE IMAGE, SC
     Route: 058
     Dates: start: 20030908

REACTIONS (22)
  - COGNITIVE DISORDER [None]
  - CONSTIPATION [None]
  - DEPRESSED LEVEL OF CONSCIOUSNESS [None]
  - DEPRESSION [None]
  - DYSGEUSIA [None]
  - DYSPNOEA [None]
  - ERECTILE DYSFUNCTION [None]
  - FATIGUE [None]
  - HEADACHE [None]
  - HOT FLUSH [None]
  - HYPERGLYCAEMIA [None]
  - HYPERKALAEMIA [None]
  - HYPOALBUMINAEMIA [None]
  - HYPOMAGNESAEMIA [None]
  - HYPOTENSION [None]
  - LEARNING DISORDER [None]
  - MOOD ALTERED [None]
  - MYOCARDIAL INFARCTION [None]
  - MYOCARDIAL ISCHAEMIA [None]
  - MYOSITIS [None]
  - PERIPHERAL SENSORY NEUROPATHY [None]
  - SINUS BRADYCARDIA [None]
